FAERS Safety Report 10596438 (Version 1)
Quarter: 2014Q4

REPORT INFORMATION
  Report Type: Spontaneous
  Country: US (occurrence: US)
  Receive Date: 20141120
  Receipt Date: 20141120
  Transmission Date: 20150529
  Serious: No
  Sender: FDA-Public Use
  Company Number: US-BAYER-2014-167300

PATIENT
  Age: 32 Year
  Sex: Female

DRUGS (1)
  1. FINACEA [Suspect]
     Active Substance: AZELAIC ACID
     Indication: ROSACEA
     Dosage: UNK
     Dates: start: 20141006

REACTIONS (5)
  - Application site pain [None]
  - Condition aggravated [None]
  - Maternal exposure during pregnancy [None]
  - Application site pruritus [None]
  - Application site discomfort [None]
